FAERS Safety Report 6749972-0 (Version None)
Quarter: 2010Q2

REPORT INFORMATION
  Report Type: 
  Country: None (occurrence: None)
  Receive Date: 20100601
  Receipt Date: 20100524
  Transmission Date: 20101027
  Serious: Yes (Life-Threatening)
  Sender: FDA-Public Use
  Company Number: IT-CELGENEUS-083-C5013-10050854

PATIENT
  Sex: Male
  Weight: 75 kg

DRUGS (6)
  1. CC-5013\PLACEBO [Suspect]
     Route: 048
     Dates: start: 20100406
  2. CC-5013\PLACEBO [Suspect]
     Route: 048
     Dates: start: 20100504
  3. VALGANCICLOVIR HCL [Concomitant]
     Indication: INFECTION PROPHYLAXIS
     Route: 048
     Dates: start: 20090617
  4. FLUCONAZOLE [Concomitant]
     Indication: INFECTION PROPHYLAXIS
     Route: 048
     Dates: start: 20100409
  5. POTASSIUM CHLORIDE [Concomitant]
     Indication: HYPOKALAEMIA
     Route: 048
     Dates: start: 20100409, end: 20100504
  6. ALLOPURINOL [Concomitant]
     Indication: PROPHYLAXIS
     Route: 048
     Dates: start: 20100403, end: 20100506

REACTIONS (3)
  - ANAEMIA [None]
  - BLOOD BILIRUBIN INCREASED [None]
  - HAEMOLYSIS [None]
